FAERS Safety Report 24558412 (Version 2)
Quarter: 2024Q4

REPORT INFORMATION
  Report Type: Report from Study
  Country: US (occurrence: US)
  Receive Date: 20241029
  Receipt Date: 20241112
  Transmission Date: 20250115
  Serious: No
  Sender: ABBVIE
  Company Number: US-ABBVIE-5979348

PATIENT
  Age: 62 Year
  Weight: 46.266 kg

DRUGS (1)
  1. CREON [Suspect]
     Active Substance: PANCRELIPASE AMYLASE\PANCRELIPASE LIPASE\PANCRELIPASE PROTEASE
     Indication: Pancreatic failure
     Dosage: TIME INTERVAL: 0.33333333 DAYS: 24000 IU (INTERNATIONAL UNIT)
     Route: 048
     Dates: start: 202402

REACTIONS (4)
  - Crohn^s disease [Unknown]
  - Type 2 diabetes mellitus [Not Recovered/Not Resolved]
  - Malabsorption [Not Recovered/Not Resolved]
  - Diarrhoea [Not Recovered/Not Resolved]

NARRATIVE: CASE EVENT DATE: 20240101
